FAERS Safety Report 11365753 (Version 2)
Quarter: 2015Q4

REPORT INFORMATION
  Report Type: Spontaneous
  Country: US (occurrence: US)
  Receive Date: 20150811
  Receipt Date: 20151009
  Transmission Date: 20160304
  Serious: Yes (Death, Hospitalization, Other)
  Sender: FDA-Public Use
  Company Number: US-JNJFOC-20150805145

PATIENT
  Age: 87 Year
  Sex: Female

DRUGS (1)
  1. XARELTO [Suspect]
     Active Substance: RIVAROXABAN
     Indication: ANTICOAGULANT THERAPY
     Route: 048
     Dates: start: 20121001, end: 20131229

REACTIONS (3)
  - Haemorrhagic stroke [Fatal]
  - Internal haemorrhage [Unknown]
  - Renal injury [Unknown]

NARRATIVE: CASE EVENT DATE: 20131220
